FAERS Safety Report 13404299 (Version 1)
Quarter: 2017Q2

REPORT INFORMATION
  Report Type: Spontaneous
  Country: JP (occurrence: JP)
  Receive Date: 20170405
  Receipt Date: 20170405
  Transmission Date: 20170830
  Serious: Yes (Other)
  Sender: FDA-Public Use
  Company Number: JP-009507513-1703JPN003029J

PATIENT
  Age: 86 Year

DRUGS (2)
  1. JANUVIA [Suspect]
     Active Substance: SITAGLIPTIN PHOSPHATE
     Indication: HYPERGLYCAEMIA
     Dosage: 50 MG, UNK
     Route: 048
     Dates: start: 201607, end: 20170321
  2. ADALAT CC [Concomitant]
     Active Substance: NIFEDIPINE
     Indication: HYPERGLYCAEMIA
     Dosage: UNK
     Route: 065

REACTIONS (1)
  - Platelet count decreased [Not Recovered/Not Resolved]

NARRATIVE: CASE EVENT DATE: 20170321
